FAERS Safety Report 5148208-4 (Version None)
Quarter: 2006Q4

REPORT INFORMATION
  Report Type: 
  Country: None (occurrence: None)
  Receive Date: 20061110
  Receipt Date: 20061102
  Transmission Date: 20070319
  Serious: Yes (Hospitalization)
  Sender: FDA-Public Use
  Company Number: AT-ABBOTT-06P-009-0349168-00

PATIENT
  Age: 45 Year
  Sex: Male

DRUGS (5)
  1. DEPAKENE [Suspect]
     Indication: EPILEPSY
     Route: 048
     Dates: start: 20060922, end: 20060925
  2. DEPAKENE [Suspect]
     Route: 048
     Dates: start: 20060926, end: 20060928
  3. DIAZEPAM [Concomitant]
     Indication: DRUG USE FOR UNKNOWN INDICATION
     Route: 048
     Dates: start: 20060921
  4. QUETIAPINE FUMARATE [Concomitant]
     Indication: DRUG USE FOR UNKNOWN INDICATION
     Route: 048
     Dates: start: 20060921, end: 20060921
  5. QUETIAPINE FUMARATE [Concomitant]
     Route: 048
     Dates: start: 20060922

REACTIONS (2)
  - DERMATITIS [None]
  - OEDEMA PERIPHERAL [None]
